FAERS Safety Report 20204860 (Version 2)
Quarter: 2022Q1

REPORT INFORMATION
  Report Type: Spontaneous
  Country: US (occurrence: US)
  Receive Date: 20211220
  Receipt Date: 20220204
  Transmission Date: 20220423
  Serious: No
  Sender: FDA-Public Use
  Company Number: US-ELI_LILLY_AND_COMPANY-US202112006252

PATIENT
  Sex: Male

DRUGS (4)
  1. TRULICITY [Suspect]
     Active Substance: DULAGLUTIDE
     Indication: Glucose tolerance impaired
     Dosage: 0.75 MG, UNKNOWN
     Route: 058
     Dates: start: 202109
  2. TRULICITY [Suspect]
     Active Substance: DULAGLUTIDE
     Indication: Weight decreased
     Dosage: 1.5 MG, UNKNOWN
     Route: 058
  3. TRULICITY [Suspect]
     Active Substance: DULAGLUTIDE
     Indication: Glucose tolerance impaired
     Dosage: 1.5 MG, UNKNOWN (2 DOSES OF 1.5 MG)
     Route: 058
  4. TRULICITY [Suspect]
     Active Substance: DULAGLUTIDE
     Indication: Weight decreased
     Dosage: 3 MG, UNKNOWN
     Route: 058

REACTIONS (6)
  - Weight decreased [Unknown]
  - Food poisoning [Unknown]
  - Flatulence [Unknown]
  - Eructation [Unknown]
  - Diarrhoea [Unknown]
  - Off label use [Unknown]
